FAERS Safety Report 8463628-8 (Version None)
Quarter: 2012Q2

REPORT INFORMATION
  Report Type: 
  Country: None (occurrence: None)
  Receive Date: 20120625
  Receipt Date: 20120618
  Transmission Date: 20120825
  Serious: No
  Sender: FDA-Public Use
  Company Number: US-PFIZER INC-2012147793

PATIENT
  Sex: Male
  Weight: 80.272 kg

DRUGS (4)
  1. AMLODIPINE [Concomitant]
     Indication: HYPERTENSION
     Dosage: 5 MG, DAILY
  2. VIAGRA [Suspect]
     Dosage: 200 MG, MONTHLY
     Route: 048
     Dates: end: 20120601
  3. FOSINOPRIL SODIUM [Concomitant]
     Indication: HYPERTENSION
     Dosage: 10 MG, DAILY
  4. VIAGRA [Suspect]
     Indication: ERECTILE DYSFUNCTION
     Dosage: 100 MG, MONTHLY
     Route: 048
     Dates: start: 20080101

REACTIONS (2)
  - EXPIRED DRUG ADMINISTERED [None]
  - DRUG INEFFECTIVE [None]
